FAERS Safety Report 7029186-X (Version None)
Quarter: 2010Q4

REPORT INFORMATION
  Report Type: 
  Country: None (occurrence: None)
  Receive Date: 20101005
  Receipt Date: 20100924
  Transmission Date: 20110411
  Serious: Yes (Other)
  Sender: FDA-Public Use
  Company Number: US-CELGENEUS-163-21880-09091201

PATIENT
  Sex: Female

DRUGS (22)
  1. REVLIMID [Suspect]
     Indication: MULTIPLE MYELOMA
     Route: 048
     Dates: start: 20090301, end: 20090401
  2. REVLIMID [Suspect]
     Route: 048
     Dates: start: 20090101
  3. REVLIMID [Suspect]
     Route: 048
     Dates: start: 20080616
  4. REVLIMID [Suspect]
     Route: 048
     Dates: start: 20080918
  5. REVLIMID [Suspect]
     Route: 048
     Dates: start: 20090612
  6. REVLIMID [Suspect]
     Dosage: 5MG OR 10MG
     Route: 048
     Dates: start: 20091222
  7. AMILORIDE HYDROCHLORIDE [Concomitant]
     Indication: PRODUCT USED FOR UNKNOWN INDICATION
     Route: 048
  8. FOLIC ACID [Concomitant]
     Indication: PRODUCT USED FOR UNKNOWN INDICATION
     Route: 048
  9. PANTOPRAZOLE DELAYED RELEASE [Concomitant]
     Indication: PRODUCT USED FOR UNKNOWN INDICATION
     Route: 048
  10. PROCHLORPERAZINE MALEATE [Concomitant]
     Indication: NAUSEA
     Route: 048
  11. ASPIRIN [Concomitant]
     Indication: PRODUCT USED FOR UNKNOWN INDICATION
     Route: 048
  12. DOCUSATE SODIUM [Concomitant]
     Indication: PRODUCT USED FOR UNKNOWN INDICATION
     Route: 048
  13. MULTI-VITAMINS [Concomitant]
     Indication: PRODUCT USED FOR UNKNOWN INDICATION
     Route: 048
  14. FENTANYL [Concomitant]
     Indication: NECK PAIN
     Route: 062
     Dates: start: 20090101
  15. VICODIN [Concomitant]
     Indication: NECK PAIN
     Route: 065
     Dates: start: 20090101
  16. ALPRAZOLAM [Concomitant]
     Indication: PRODUCT USED FOR UNKNOWN INDICATION
     Route: 065
     Dates: start: 20090101
  17. AMLODIPINE [Concomitant]
     Indication: PRODUCT USED FOR UNKNOWN INDICATION
     Route: 048
     Dates: start: 20090610
  18. HYDROMORPHONE HCL [Concomitant]
     Indication: PAIN
     Route: 048
  19. HYDROMORPHONE HCL [Concomitant]
     Dosage: 1-2 TABLETS
     Route: 048
     Dates: start: 20100104
  20. DIPHENHYDRAMINE [Concomitant]
     Route: 048
     Dates: start: 20091123
  21. IBUPROFEN [Concomitant]
     Indication: PAIN
     Route: 048
     Dates: start: 20100104
  22. CALCIUM CARBONATE-VITAMIN D3 [Concomitant]
     Indication: PRODUCT USED FOR UNKNOWN INDICATION
     Dosage: 600MG - 400UNIT
     Route: 048
     Dates: start: 20100104

REACTIONS (6)
  - ABSCESS ORAL [None]
  - DIARRHOEA [None]
  - HYPOKALAEMIA [None]
  - LEUKOPENIA [None]
  - MENINGIOMA [None]
  - NECK PAIN [None]
